FAERS Safety Report 19639218 (Version 3)
Quarter: 2021Q4

REPORT INFORMATION
  Report Type: Spontaneous
  Country: US (occurrence: US)
  Receive Date: 20210729
  Receipt Date: 20211221
  Transmission Date: 20220303
  Serious: Yes (Other)
  Sender: FDA-Public Use
  Company Number: US-UCBSA-2021034943

PATIENT
  Sex: Male
  Weight: 75.6 kg

DRUGS (2)
  1. BRIVIACT [Suspect]
     Active Substance: BRIVARACETAM
     Indication: Seizure
     Dosage: 50 MILLIGRAM, 2X/DAY (BID)
  2. TEGRETOL [Concomitant]
     Active Substance: CARBAMAZEPINE
     Indication: Seizure

REACTIONS (3)
  - Limb injury [Unknown]
  - Tendon rupture [Unknown]
  - Aura [Not Recovered/Not Resolved]

NARRATIVE: CASE EVENT DATE: 20210101
